FAERS Safety Report 24098132 (Version 1)
Quarter: 2024Q3

REPORT INFORMATION
  Report Type: Spontaneous
  Country: CA (occurrence: CA)
  Receive Date: 20240716
  Receipt Date: 20240716
  Transmission Date: 20241016
  Serious: Yes (Hospitalization)
  Sender: FRESENIUS KABI
  Company Number: CA-FreseniusKabi-FK202410781

PATIENT
  Age: 68 Year
  Sex: Female
  Weight: 92 kg

DRUGS (2)
  1. VANCOMYCIN [Suspect]
     Active Substance: VANCOMYCIN
     Indication: Sepsis
     Dosage: FROM OF ADMIN: NOT SPECIFIED
     Route: 042
  2. CEFTAZIDIME [Suspect]
     Active Substance: CEFTAZIDIME
     Indication: Sepsis
     Dosage: FORM OF ADMIN - POWDER FOR SOLUTION
     Route: 042

REACTIONS (3)
  - Cross sensitivity reaction [Recovering/Resolving]
  - Eosinophilia [Recovering/Resolving]
  - Rash pruritic [Recovering/Resolving]
